FAERS Safety Report 9117978 (Version 1)
Quarter: 2013Q1

REPORT INFORMATION
  Report Type: Spontaneous
  Country: US (occurrence: US)
  Receive Date: 20130208
  Receipt Date: 20130208
  Transmission Date: 20140127
  Serious: Yes (Hospitalization, Other)
  Sender: FDA-Public Use
  Company Number: US-ELI_LILLY_AND_COMPANY-US201210000252

PATIENT
  Sex: Male

DRUGS (2)
  1. FORTEO [Suspect]
     Indication: OSTEOPOROSIS
     Dosage: 20 UG, QD
     Dates: start: 20120923
  2. FORTEO [Suspect]
     Dosage: 20 UG, QD

REACTIONS (4)
  - Pneumonia [Unknown]
  - Cardiac failure congestive [Unknown]
  - Lung disorder [Unknown]
  - Drug dose omission [Unknown]
